FAERS Safety Report 19992285 (Version 1)
Quarter: 2021Q4

REPORT INFORMATION
  Report Type: Spontaneous
  Country: FR (occurrence: FR)
  Receive Date: 20211025
  Receipt Date: 20211025
  Transmission Date: 20220303
  Serious: Yes (Hospitalization)
  Sender: FDA-Public Use
  Company Number: None

PATIENT
  Age: 61 Year
  Sex: Male
  Weight: 90 kg

DRUGS (4)
  1. CARBOPLATIN [Suspect]
     Active Substance: CARBOPLATIN
     Indication: Diffuse large B-cell lymphoma refractory
     Dosage: J2, 10 MG / ML
     Route: 041
     Dates: start: 20210922, end: 20210922
  2. ETOPOSIDE [Suspect]
     Active Substance: ETOPOSIDE
     Indication: Diffuse large B-cell lymphoma refractory
     Dosage: J1 J2 J3
     Route: 041
     Dates: start: 20210921, end: 20210923
  3. MESNA [Suspect]
     Active Substance: MESNA
     Indication: Diffuse large B-cell lymphoma refractory
     Dosage: J2
     Route: 041
     Dates: start: 20210922, end: 20210922
  4. IFOSFAMIDE [Suspect]
     Active Substance: IFOSFAMIDE
     Indication: Diffuse large B-cell lymphoma refractory
     Dosage: J2
     Route: 041
     Dates: start: 20210922, end: 20210922

REACTIONS (1)
  - Encephalopathy [Recovering/Resolving]

NARRATIVE: CASE EVENT DATE: 20210924
